FAERS Safety Report 13045092 (Version 2)
Quarter: 2016Q4

REPORT INFORMATION
  Report Type: Report from Study
  Country: FR (occurrence: FR)
  Receive Date: 20161220
  Receipt Date: 20161223
  Transmission Date: 20170207
  Serious: Yes (Death)
  Sender: FDA-Public Use
  Company Number: PHHY2016FR170336

PATIENT
  Age: 72 Year
  Sex: Male

DRUGS (4)
  1. OXALIPLATINE [Concomitant]
     Active Substance: OXALIPLATIN
     Indication: CHEMOTHERAPY
     Route: 065
     Dates: end: 20160627
  2. 5-FLUOROURACIL [Concomitant]
     Active Substance: FLUOROURACIL
     Indication: CHEMOTHERAPY
     Route: 065
     Dates: end: 20160627
  3. FOLINIC ACID [Concomitant]
     Active Substance: LEUCOVORIN
     Indication: CHEMOTHERAPY
     Route: 065
     Dates: end: 20160627
  4. ZARZIO [Suspect]
     Active Substance: FILGRASTIM
     Indication: PRODUCT USED FOR UNKNOWN INDICATION
     Dosage: 1 DF, 5 DAYS
     Route: 058
     Dates: start: 20160603, end: 20160705

REACTIONS (1)
  - Death [Fatal]

NARRATIVE: CASE EVENT DATE: 20160710
